FAERS Safety Report 9239915 (Version 2)
Quarter: 2013Q2

REPORT INFORMATION
  Report Type: Spontaneous
  Country: FR (occurrence: FR)
  Receive Date: 20130418
  Receipt Date: 20130508
  Transmission Date: 20140414
  Serious: Yes (Hospitalization, Other)
  Sender: FDA-Public Use
  Company Number: FR-JNJFOC-20130407688

PATIENT
  Sex: Male
  Weight: 82.09 kg

DRUGS (3)
  1. XARELTO [Suspect]
     Indication: EMBOLISM VENOUS
     Route: 065
     Dates: start: 20121107, end: 20130309
  2. XARELTO [Suspect]
     Indication: DEEP VEIN THROMBOSIS
     Route: 065
     Dates: start: 20121107, end: 20130309
  3. BIPRETERAX [Concomitant]
     Route: 065

REACTIONS (3)
  - Haemorrhoidal haemorrhage [Not Recovered/Not Resolved]
  - Haemorrhagic anaemia [Unknown]
  - Asthenia [Unknown]
